FAERS Safety Report 15488876 (Version 1)
Quarter: 2018Q4

REPORT INFORMATION
  Report Type: Spontaneous
  Country: US (occurrence: US)
  Receive Date: 20181004
  Receipt Date: 20181004
  Transmission Date: 20190205
  Serious: No
  Sender: FDA-Public Use
  Company Number: None

PATIENT
  Age: 31 Year
  Sex: Female
  Weight: 58.97 kg

DRUGS (1)
  1. TALTZ [Suspect]
     Active Substance: IXEKIZUMAB
     Indication: PSORIASIS
     Dosage: INJECT 160MG (2  PEN) SUBCUTANEOUSLY AT WEEK 0, THEN   80MG (1 PEN)   AT WEEK 2 AS DIRECTED??SEP - ONGOING
     Route: 058

REACTIONS (1)
  - Rosacea [None]
